FAERS Safety Report 10249404 (Version 1)
Quarter: 2014Q2

REPORT INFORMATION
  Report Type: Spontaneous
  Country: AU (occurrence: AU)
  Receive Date: 20140620
  Receipt Date: 20140620
  Transmission Date: 20141212
  Serious: Yes (Other)
  Sender: FDA-Public Use
  Company Number: AU-SA-2014SA081507

PATIENT
  Sex: Male

DRUGS (4)
  1. FEXOFENADINE HYDROCHLORIDE [Suspect]
     Indication: ANAPHYLACTIC REACTION
     Dosage: DRUG STARTED 20 YEARS AGO
     Route: 048
  2. ANTIHYPERTENSIVES [Concomitant]
     Indication: BLOOD PRESSURE
  3. METFORMIN [Concomitant]
     Indication: DIABETES MELLITUS
  4. PANADEINE [Concomitant]
     Dosage: ABOUT 10 A WEEK, 2 AT NIGHT AND 1-2 DURING THE DAY FOR 12 MONTHS
     Route: 065

REACTIONS (3)
  - Hepatic cirrhosis [Unknown]
  - Fall [Unknown]
  - Arthrodesis [Unknown]
